FAERS Safety Report 9188493 (Version 1)
Quarter: 2012Q4

REPORT INFORMATION
  Report Type: 
  Country: RO (occurrence: RO)
  Receive Date: 20121205
  Receipt Date: 20121205
  Transmission Date: 20130627
  Serious: Yes (Hospitalization, Disabling)
  Sender: FDA-Public Use
  Company Number: RO-009507513-1211ROM012655

PATIENT
  Age: 54 Year
  Sex: Female
  Weight: 79 kg

DRUGS (9)
  1. TEMOZOLOMIDE [Suspect]
     Indication: GLIOBLASTOMA
     Dosage: 140 mg, bid
     Route: 048
     Dates: start: 20100830, end: 20100919
  2. TEMOZOLOMIDE [Suspect]
     Dosage: UNK
     Dates: end: 20101015
  3. STUDY DRUG (UNSPECIFIED) [Suspect]
     Indication: GLIOBLASTOMA
     Dosage: Every two weeks
     Route: 042
     Dates: start: 20100830, end: 20101015
  4. CARBAMAZEPINE [Concomitant]
     Dosage: 200 mg, bid
     Dates: start: 20100803
  5. FUROSEMIDE [Concomitant]
     Dosage: 20 mg, qd
     Dates: start: 20100902
  6. MANNITOL [Concomitant]
     Dosage: 250 ml, qd
     Dates: start: 20100902, end: 20101102
  7. DEXAMETHASONE [Concomitant]
  8. MAGNESIUM ASPARTATE (+) POTASSIUM ASPARTATE [Concomitant]
  9. DIPYRONE [Concomitant]
     Dosage: 500 mg, bid
     Dates: start: 20100831, end: 20101004

REACTIONS (1)
  - Febrile bone marrow aplasia [Recovered/Resolved with Sequelae]
